FAERS Safety Report 7150038-9 (Version None)
Quarter: 2010Q4

REPORT INFORMATION
  Report Type: 
  Country: None (occurrence: None)
  Receive Date: 20101210
  Receipt Date: 20101207
  Transmission Date: 20110411
  Serious: No
  Sender: FDA-Public Use
  Company Number: US-PFIZER INC-2010166572

PATIENT
  Sex: Male

DRUGS (2)
  1. VIAGRA [Suspect]
     Dosage: UNK
     Route: 048
  2. CIALIS [Suspect]
     Dosage: UNK
     Route: 048

REACTIONS (2)
  - ERECTION INCREASED [None]
  - PENILE CURVATURE [None]
